FAERS Safety Report 9631484 (Version 1)
Quarter: 2013Q4

REPORT INFORMATION
  Report Type: Spontaneous
  Country: AU (occurrence: None)
  Receive Date: 20131016
  Receipt Date: 20131016
  Transmission Date: 20140711
  Serious: Yes (Hospitalization)
  Sender: FDA-Public Use
  Company Number: FK201304533

PATIENT
  Age: 57 Year
  Sex: Female

DRUGS (5)
  1. BENZTROPINE [Suspect]
     Indication: TREMOR
  2. MOVICOL [Suspect]
     Indication: CONSTIPATION
     Dosage: SACHET
  3. LACTULOSE [Suspect]
     Indication: CONSTIPATION
  4. CHLORPROMAZINE(CHLORPROMAZINE) [Concomitant]
  5. OLANZAPINE(OLANZAPINE) [Concomitant]

REACTIONS (2)
  - Drug interaction [None]
  - Extrapyramidal disorder [None]
